FAERS Safety Report 22204174 (Version 2)
Quarter: 2023Q4

REPORT INFORMATION
  Report Type: Spontaneous
  Country: US (occurrence: US)
  Receive Date: 20230412
  Receipt Date: 20231023
  Transmission Date: 20240110
  Serious: No
  Sender: FDA-Public Use
  Company Number: US-PFIZER INC-PV202300066003

PATIENT
  Age: 75 Year
  Sex: Male

DRUGS (4)
  1. IBRANCE [Suspect]
     Active Substance: PALBOCICLIB
     Indication: Breast cancer metastatic
     Dosage: DAILY FOR 21 DAYS FOLLOWED BY 7 DAYS OFF, EVERY 28 DAYS
     Route: 048
  2. XANAX [Concomitant]
     Active Substance: ALPRAZOLAM
     Indication: Sleep disorder
     Dosage: BEFORE MRI OR CT SCANS (PATIENT NOT TAKING: REPORTED ON 04OCT2023)
     Route: 048
  3. AROMASIN [Concomitant]
     Active Substance: EXEMESTANE
     Dosage: 25 MG, DAILY
     Route: 048
  4. NEURONTIN [Concomitant]
     Active Substance: GABAPENTIN
     Dosage: 90 TABLET, SIG: TAKE 800 MG TOTAL BY MOUTH NIGHTLY. PATIENT TAKING DIFFERENTLY: TAKE 400 MG NIGHTLY
     Route: 048

REACTIONS (2)
  - Lymphadenopathy [Unknown]
  - Oropharyngeal discomfort [Unknown]
